FAERS Safety Report 23282737 (Version 1)
Quarter: 2023Q4

REPORT INFORMATION
  Report Type: Spontaneous
  Country: US (occurrence: None)
  Receive Date: 20231209
  Receipt Date: 20231209
  Transmission Date: 20240110
  Serious: Yes (Hospitalization)
  Sender: FDA-Public Use
  Company Number: None

PATIENT
  Age: 80 Year
  Sex: Female
  Weight: 78.7 kg

DRUGS (16)
  1. CARBOPLATIN [Suspect]
     Active Substance: CARBOPLATIN
     Dates: end: 20221207
  2. PEMBROLIZUMAB [Suspect]
     Active Substance: PEMBROLIZUMAB
     Dates: end: 20221228
  3. PEMETREXED [Suspect]
     Active Substance: PEMETREXED
     Dates: end: 20221229
  4. FOLIC ACID [Concomitant]
  5. GABAPENTIN [Concomitant]
     Active Substance: GABAPENTIN
  6. LIDOCAIN/PRIOLOCAIN [Concomitant]
  7. METHYLPHENIDATE HCI [Concomitant]
  8. ALLOPURINOL [Concomitant]
     Active Substance: ALLOPURINOL
  9. DEXAMETHASONE [Concomitant]
     Active Substance: DEXAMETHASONE
  10. DULOXETINE HCI [Concomitant]
  11. LORAZEPAM [Concomitant]
  12. OMEPRAZOLE [Concomitant]
     Active Substance: OMEPRAZOLE
  13. ONDANSETRON HCI [Concomitant]
  14. PROVASTAIN SODIUM [Concomitant]
  15. PROCHLORPERAZINE MALEATE [Concomitant]
  16. SENNOSDIES [Concomitant]

REACTIONS (2)
  - Pathological fracture [None]
  - Therapy interrupted [None]

NARRATIVE: CASE EVENT DATE: 20221007
